FAERS Safety Report 4396566-0 (Version None)
Quarter: 2004Q2

REPORT INFORMATION
  Report Type: 
  Country: None (occurrence: None)
  Receive Date: 20040524
  Receipt Date: 20031016
  Transmission Date: 20050107
  Serious: Yes (Hospitalization)
  Sender: FDA-Public Use
  Company Number: WSDF_00363

PATIENT
  Age: 61 Year
  Sex: Female

DRUGS (6)
  1. WINRHO SDF [Suspect]
     Indication: IDIOPATHIC THROMBOCYTOPENIC PURPURA
     Dosage: 6000 MCG ONCE
     Dates: start: 20031014, end: 20031014
  2. PREVACID [Concomitant]
  3. FOLIC ACID [Concomitant]
  4. GLYBURIDE [Concomitant]
  5. AVANDIA [Concomitant]
  6. DANAZOL [Concomitant]

REACTIONS (5)
  - BLOOD GLUCOSE DECREASED [None]
  - CHILLS [None]
  - HAEMOLYSIS [None]
  - NAUSEA [None]
  - VOMITING [None]
